FAERS Safety Report 4913922-X (Version None)
Quarter: 2006Q1

REPORT INFORMATION
  Report Type: 
  Country: None (occurrence: None)
  Receive Date: 20060216
  Receipt Date: 20060118
  Transmission Date: 20060701
  Serious: Yes (Hospitalization)
  Sender: FDA-Public Use
  Company Number: US-MERCK-0601USA02143

PATIENT
  Age: 67 Year
  Sex: Female
  Weight: 125 kg

DRUGS (7)
  1. FOSAMAX [Suspect]
     Indication: OSTEOPOROSIS
     Route: 048
     Dates: start: 20050301
  2. FOSAMAX [Suspect]
     Route: 048
     Dates: start: 19950101, end: 20030101
  3. COUMADIN [Concomitant]
     Route: 065
  4. LASIX [Concomitant]
     Route: 065
  5. LEXAPRO [Concomitant]
     Route: 065
  6. SYNTHROID [Concomitant]
     Route: 065
  7. ATENOLOL [Concomitant]
     Route: 065

REACTIONS (2)
  - FRACTURE [None]
  - HIP FRACTURE [None]
